FAERS Safety Report 24592829 (Version 1)
Quarter: 2024Q4

REPORT INFORMATION
  Report Type: Spontaneous
  Country: US (occurrence: None)
  Receive Date: 20241107
  Receipt Date: 20241107
  Transmission Date: 20250114
  Serious: Yes (Life-Threatening)
  Sender: Public
  Company Number: None

PATIENT
  Age: 43 Year
  Sex: Female

DRUGS (1)
  1. DUPIXENT [Suspect]
     Active Substance: DUPILUMAB
     Dosage: OTHER FREQUENCY : EVERY 14 DAYS;?
     Route: 058
     Dates: start: 20240819

REACTIONS (6)
  - Hypersensitivity [None]
  - Vertigo [None]
  - Nausea [None]
  - Dizziness [None]
  - Post procedural complication [None]
  - Blood pressure diastolic increased [None]

NARRATIVE: CASE EVENT DATE: 20241107
